FAERS Safety Report 8347343-7 (Version None)
Quarter: 2012Q2

REPORT INFORMATION
  Report Type: 
  Country: None (occurrence: None)
  Receive Date: 20120509
  Receipt Date: 20120430
  Transmission Date: 20120825
  Serious: Yes (Hospitalization)
  Sender: FDA-Public Use
  Company Number: DE-ROCHE-1035240

PATIENT
  Sex: Female

DRUGS (6)
  1. ASPIRIN [Concomitant]
  2. TAMBOCOR [Concomitant]
  3. LUCENTIS [Suspect]
     Indication: AGE-RELATED MACULAR DEGENERATION
     Route: 050
     Dates: start: 20111027
  4. BELOC [Concomitant]
  5. LUCENTIS [Suspect]
     Route: 050
     Dates: start: 20111201
  6. ANTIARRHYTHMICS [Concomitant]

REACTIONS (1)
  - ARRHYTHMIA [None]
